FAERS Safety Report 25686052 (Version 1)
Quarter: 2025Q3

REPORT INFORMATION
  Report Type: Spontaneous
  Country: US (occurrence: None)
  Receive Date: 20250815
  Receipt Date: 20250815
  Transmission Date: 20251021
  Serious: Yes (Life-Threatening, Hospitalization)
  Sender: FDA-CTU
  Company Number: None

PATIENT
  Age: 71 Year
  Sex: Male

DRUGS (5)
  1. PLAVIX [Suspect]
     Active Substance: CLOPIDOGREL BISULFATE
  2. WARFARIN [Suspect]
     Active Substance: WARFARIN
  3. PLAVIX [Concomitant]
     Active Substance: CLOPIDOGREL BISULFATE
  4. WARFARIN [Concomitant]
     Active Substance: WARFARIN
  5. ASPIRIN [Concomitant]
     Active Substance: ASPIRIN

REACTIONS (3)
  - International normalised ratio increased [None]
  - Anaemia [None]
  - Haematuria [None]

NARRATIVE: CASE EVENT DATE: 20240117
